FAERS Safety Report 6841219-X (Version None)
Quarter: 2010Q3

REPORT INFORMATION
  Report Type: 
  Country: None (occurrence: None)
  Receive Date: 20100714
  Receipt Date: 20070901
  Transmission Date: 20110219
  Serious: No
  Sender: FDA-Public Use
  Company Number: US-PFIZER INC-2007051986

PATIENT
  Sex: Female
  Weight: 52.3 kg

DRUGS (3)
  1. CHANTIX [Suspect]
     Indication: SMOKING CESSATION THERAPY
     Dates: start: 20070617
  2. MOBIC [Concomitant]
  3. PEPSIN [Concomitant]

REACTIONS (5)
  - CHEST DISCOMFORT [None]
  - HEADACHE [None]
  - OROPHARYNGEAL DISCOMFORT [None]
  - PAIN [None]
  - PRODUCTIVE COUGH [None]
